FAERS Safety Report 8593187-0 (Version None)
Quarter: 2012Q3

REPORT INFORMATION
  Report Type: 
  Country: None (occurrence: None)
  Receive Date: 20120814
  Receipt Date: 20120807
  Transmission Date: 20120928
  Serious: Yes (Other)
  Sender: FDA-Public Use
  Company Number: FR-PFIZER INC-2012181085

PATIENT
  Age: 35 Year
  Sex: Female

DRUGS (2)
  1. EFFEXOR XR [Suspect]
     Indication: BIPOLAR DISORDER
     Dosage: 225 MG, 1X/DAY
  2. LITHIUM [Concomitant]

REACTIONS (3)
  - CEREBRAL VASOCONSTRICTION [None]
  - HEADACHE [None]
  - STRESS [None]
